FAERS Safety Report 10370980 (Version 2)
Quarter: 2014Q3

REPORT INFORMATION
  Report Type: Spontaneous
  Country: US (occurrence: US)
  Receive Date: 20140808
  Receipt Date: 20140905
  Transmission Date: 20150326
  Serious: Yes (Other)
  Sender: FDA-Public Use
  Company Number: US-BEH-2014044322

PATIENT
  Age: 33 Year
  Sex: Female
  Weight: 58 kg

DRUGS (11)
  1. PROAIR HFA [Concomitant]
     Active Substance: ALBUTEROL SULFATE
     Indication: ASTHMA
     Dosage: 2 PUFFS EVERY 4-6 HOURS PRN
     Route: 048
  2. LIDOCAINE. [Concomitant]
     Active Substance: LIDOCAINE
  3. HIZENTRA [Suspect]
     Active Substance: HUMAN IMMUNOGLOBULIN G
     Indication: IMMUNODEFICIENCY COMMON VARIABLE
     Route: 058
     Dates: start: 20140627
  4. MULTIVITAMIN [Concomitant]
     Active Substance: VITAMINS
  5. EPIPEN [Concomitant]
     Active Substance: EPINEPHRINE
  6. PROBIOTIC [Concomitant]
     Active Substance: PROBIOTICS NOS
  7. ACETAMINOPHEN. [Concomitant]
     Active Substance: ACETAMINOPHEN
  8. DIPHENHYDRAMINE [Concomitant]
     Active Substance: DIPHENHYDRAMINE
  9. AZITHROMYCIN [Concomitant]
     Active Substance: AZITHROMYCIN ANHYDROUS
  10. QVAR [Concomitant]
     Active Substance: BECLOMETHASONE DIPROPIONATE
     Indication: ASTHMA
     Route: 055
  11. HIZENTRA [Suspect]
     Active Substance: HUMAN IMMUNOGLOBULIN G
     Indication: IMMUNOLOGY TEST ABNORMAL
     Route: 058
     Dates: start: 20140627

REACTIONS (9)
  - Syncope [Recovered/Resolved]
  - Meningitis aseptic [Recovered/Resolved]
  - Neck pain [Recovered/Resolved]
  - Nuchal rigidity [Recovered/Resolved]
  - Dizziness [Recovered/Resolved]
  - Somnolence [Recovered/Resolved]
  - Pyrexia [Recovered/Resolved]
  - Headache [Recovered/Resolved]
  - Asthenia [Recovered/Resolved]

NARRATIVE: CASE EVENT DATE: 20140728
